FAERS Safety Report 6217638-1 (Version None)
Quarter: 2009Q2

REPORT INFORMATION
  Report Type: 
  Country: None (occurrence: None)
  Receive Date: 20090604
  Receipt Date: 20090604
  Transmission Date: 20091009
  Serious: Yes (Life-Threatening)
  Sender: FDA-Public Use
  Company Number: None

PATIENT
  Sex: Male
  Weight: 72.5755 kg

DRUGS (1)
  1. ALBUTEROL SULFATE [Suspect]
     Indication: ASTHMA
     Dosage: 2 PUFFS AS NEEDED INHAL
     Route: 055
     Dates: start: 20090101, end: 20090601

REACTIONS (6)
  - BURNING SENSATION [None]
  - COUGH [None]
  - LUNG DISORDER [None]
  - THERAPEUTIC RESPONSE DECREASED [None]
  - THERAPEUTIC RESPONSE DELAYED [None]
  - THROAT IRRITATION [None]
